FAERS Safety Report 25777956 (Version 2)
Quarter: 2025Q4

REPORT INFORMATION
  Report Type: Report from Study
  Country: US (occurrence: US)
  Receive Date: 20250909
  Receipt Date: 20251125
  Transmission Date: 20260119
  Serious: Yes (Other)
  Sender: BIOGEN
  Company Number: US-BIOGEN-2025BI01323305

PATIENT
  Age: 57 Year
  Sex: Female
  Weight: 76.8 kg

DRUGS (16)
  1. TYSABRI [Suspect]
     Active Substance: NATALIZUMAB
     Indication: Relapsing-remitting multiple sclerosis
     Dates: start: 20180111, end: 20250701
  2. Lactobacillus acidophilus (Probiotic Acidophilus) [Concomitant]
     Indication: Product used for unknown indication
  3. MAGNESIUM [Concomitant]
     Active Substance: MAGNESIUM
     Indication: Product used for unknown indication
  4. DIETARY SUPPLEMENT\HERBALS\MILK THISTLE [Concomitant]
     Active Substance: MILK THISTLE
     Indication: Product used for unknown indication
  5. BACTROBAN [Concomitant]
     Active Substance: MUPIROCIN CALCIUM
     Indication: Product used for unknown indication
     Dosage: APPLY OINTMENT TO BILATERAL NOSTRILS TWICE DAILY STARTING 5 DAYS PRIOR TO SURGERY.
  6. Venlafaxine (Effexor-Xr) [Concomitant]
     Indication: Product used for unknown indication
  7. TYLENOL [Concomitant]
     Active Substance: ACETAMINOPHEN
     Indication: Product used for unknown indication
  8. LIPITOR [Concomitant]
     Active Substance: ATORVASTATIN CALCIUM
     Indication: Product used for unknown indication
  9. ZYRTEC [Concomitant]
     Active Substance: CETIRIZINE HYDROCHLORIDE
     Indication: Product used for unknown indication
  10. Atenolol-Chlorthalidone (Tenoretic) [Concomitant]
     Indication: Product used for unknown indication
     Dosage: 50-25 MG
  11. Cholecalciferol, Vitamin D3/Vitamin K2 [Concomitant]
     Indication: Product used for unknown indication
  12. NEURONTIN [Concomitant]
     Active Substance: GABAPENTIN
     Indication: Product used for unknown indication
  13. HIBICLENS [Concomitant]
     Active Substance: CHLORHEXIDINE GLUCONATE
     Indication: Product used for unknown indication
     Dosage: SHOWER THE MORNING OR EVENING PRIOR TO SURGERY, RINSE AND PUT FRESH CLEAN CLOTHES. USE ONLY CLEAN TOWELS AND CLOTHES AFTER APPLYING HIBICLENS.
  14. CANNABIS SATIVA SUBSP. INDICA TOP [Concomitant]
     Active Substance: CANNABIS SATIVA SUBSP. INDICA TOP
     Indication: Product used for unknown indication
  15. BUPROPION [Concomitant]
     Active Substance: BUPROPION
     Indication: Product used for unknown indication
  16. OMEPRAZOLE [Concomitant]
     Active Substance: OMEPRAZOLE
     Indication: Product used for unknown indication

REACTIONS (1)
  - Breast cancer female [Recovered/Resolved with Sequelae]

NARRATIVE: CASE EVENT DATE: 20250508
